FAERS Safety Report 7378610-1 (Version None)
Quarter: 2011Q1

REPORT INFORMATION
  Report Type: 
  Country: None (occurrence: None)
  Receive Date: 20110328
  Receipt Date: 20110322
  Transmission Date: 20110831
  Serious: Yes (Hospitalization)
  Sender: FDA-Public Use
  Company Number: US-ROCHE-731046

PATIENT
  Sex: Female
  Weight: 54.4 kg

DRUGS (13)
  1. ACTEMRA [Suspect]
     Route: 042
     Dates: start: 20100607
  2. PREDNISONE [Concomitant]
     Route: 048
  3. ACTEMRA [Suspect]
     Route: 042
     Dates: start: 20100804
  4. ACTEMRA [Suspect]
     Route: 042
     Dates: start: 20110224
  5. METHOTREXATE [Suspect]
     Dosage: START DATE: PRIOR TO 1996.
     Route: 048
     Dates: start: 19950101
  6. ACTEMRA [Suspect]
     Dosage: FORM: INFUSION
     Route: 042
     Dates: start: 20100301
  7. ACTEMRA [Suspect]
     Route: 042
     Dates: start: 20100706
  8. LYRICA [Concomitant]
     Route: 048
  9. ACTEMRA [Suspect]
     Dosage: DOSE INCREASED
     Route: 042
     Dates: start: 20100520
  10. FOSAMAX [Concomitant]
     Indication: OSTEOPOROSIS
     Route: 048
  11. DILAUDID [Concomitant]
     Indication: PAIN
  12. PROZAC [Concomitant]
     Route: 048
  13. ACTEMRA [Suspect]
     Route: 042
     Dates: start: 20100901, end: 20101201

REACTIONS (6)
  - NASOPHARYNGITIS [None]
  - DIZZINESS [None]
  - PNEUMONIA [None]
  - RHEUMATOID ARTHRITIS [None]
  - HYPERTENSION [None]
  - MALAISE [None]
